FAERS Safety Report 9209458 (Version 1)
Quarter: 2013Q2

REPORT INFORMATION
  Report Type: Spontaneous
  Country: US (occurrence: US)
  Receive Date: 20130404
  Receipt Date: 20130404
  Transmission Date: 20140414
  Serious: Yes (Other)
  Sender: FDA-Public Use
  Company Number: US-SANOFI-AVENTIS-2013SA035122

PATIENT
  Age: 66 Year
  Sex: Male
  Weight: 141.52 kg

DRUGS (2)
  1. LANTUS SOLOSTAR [Suspect]
     Indication: TYPE 2 DIABETES MELLITUS
     Route: 051
     Dates: start: 2007
  2. SOLOSTAR [Suspect]
     Indication: TYPE 2 DIABETES MELLITUS
     Dates: start: 2007

REACTIONS (3)
  - Shoulder operation [Unknown]
  - Apnoea [Recovered/Resolved]
  - Blood glucose increased [Unknown]
